FAERS Safety Report 25259928 (Version 1)
Quarter: 2025Q2

REPORT INFORMATION
  Report Type: Spontaneous
  Country: CA (occurrence: CA)
  Receive Date: 20250501
  Receipt Date: 20250501
  Transmission Date: 20250717
  Serious: Yes (Hospitalization)
  Sender: PFIZER
  Company Number: CA-PFIZER INC-202500091260

PATIENT
  Age: 3 Month
  Sex: Male
  Weight: 6 kg

DRUGS (16)
  1. VINCRISTINE SULFATE [Suspect]
     Active Substance: VINCRISTINE SULFATE
     Indication: Congenital fibrosarcoma
     Route: 041
  2. ACYCLOVIR [Concomitant]
     Active Substance: ACYCLOVIR
  3. COSMEGEN [Concomitant]
     Active Substance: DACTINOMYCIN
  4. CYCLOPHOSPHAMIDE [Concomitant]
     Active Substance: CYCLOPHOSPHAMIDE
  5. DEXMEDETOMIDINE [Concomitant]
     Active Substance: DEXMEDETOMIDINE
  6. EPINEPHRINE [Concomitant]
     Active Substance: EPINEPHRINE
  7. FENTANYL [Concomitant]
     Active Substance: FENTANYL
  8. GANCICLOVIR [Concomitant]
     Active Substance: GANCICLOVIR
  9. KETAMINE [Concomitant]
     Active Substance: KETAMINE
  10. LACTULOSE [Concomitant]
     Active Substance: LACTULOSE
  11. MANNITOL [Concomitant]
     Active Substance: MANNITOL
  12. PHYTONADIONE [Concomitant]
     Active Substance: PHYTONADIONE
  13. PIPERACILLIN SODIUM\TAZOBACTAM SODIUM [Concomitant]
     Active Substance: PIPERACILLIN SODIUM\TAZOBACTAM SODIUM
  14. ROCURONIUM [Concomitant]
     Active Substance: ROCURONIUM BROMIDE
  15. SULFAMETHOXAZOLE\TRIMETHOPRIM [Concomitant]
     Active Substance: SULFAMETHOXAZOLE\TRIMETHOPRIM
  16. RIFAXIMIN [Concomitant]
     Active Substance: RIFAXIMIN

REACTIONS (10)
  - Faeces discoloured [Unknown]
  - Fluid intake reduced [Unknown]
  - General physical health deterioration [Unknown]
  - Hepatic enzyme increased [Unknown]
  - Hepatitis acute [Unknown]
  - Hepatomegaly [Unknown]
  - Moaning [Unknown]
  - Mucous stools [Unknown]
  - Periportal oedema [Unknown]
  - Infantile vomiting [Unknown]
